FAERS Safety Report 4517541-9 (Version None)
Quarter: 2004Q4

REPORT INFORMATION
  Report Type: 
  Country: None (occurrence: None)
  Receive Date: 20041203
  Receipt Date: 20040808
  Transmission Date: 20050328
  Serious: Yes (Death, Hospitalization)
  Sender: FDA-Public Use
  Company Number: GB-ABBOTT-04P-167-0269908-00

PATIENT
  Sex: Male
  Weight: 60 kg

DRUGS (4)
  1. SIMDAX [Suspect]
     Indication: CARDIAC FAILURE ACUTE
     Dosage: 12 UG/KG
     Route: 042
  2. SIMDAX [Suspect]
     Dosage: 0.1UG/KG/MIN
     Route: 042
  3. SIMDAX [Suspect]
     Dosage: 0.2 UG/KG/MIN
     Route: 042
  4. PARACETAMOL [Concomitant]
     Indication: DRUG USE FOR UNKNOWN INDICATION
     Route: 048

REACTIONS (2)
  - CARDIO-RESPIRATORY ARREST [None]
  - RENAL FAILURE CHRONIC [None]
